FAERS Safety Report 4835646-X (Version None)
Quarter: 2005Q4

REPORT INFORMATION
  Report Type: 
  Country: None (occurrence: None)
  Receive Date: 20051121
  Receipt Date: 20051111
  Transmission Date: 20060501
  Serious: Yes (Hospitalization)
  Sender: FDA-Public Use
  Company Number: 2005155798

PATIENT
  Age: 75 Year
  Sex: Female

DRUGS (6)
  1. ZOLOFT [Suspect]
     Indication: ILL-DEFINED DISORDER
     Dosage: 100 MG, ORAL
     Route: 048
     Dates: start: 20040601, end: 20040827
  2. SOLIAN (AMISULPRIDE) [Suspect]
     Indication: SCHIZOPHRENIA, PARANOID TYPE
     Dosage: 400 MG
     Dates: start: 20040601, end: 20040818
  3. RAMIPRIL [Concomitant]
  4. GLUCOPHAGE [Concomitant]
  5. METOPROLOL TARTRATE [Concomitant]
  6. ISCOVER (CLOPIDOGREL SULFATE) [Concomitant]

REACTIONS (2)
  - DRUG INTERACTION [None]
  - PARKINSONISM [None]
